FAERS Safety Report 6184833-X (Version None)
Quarter: 2009Q2

REPORT INFORMATION
  Report Type: 
  Country: None (occurrence: None)
  Receive Date: 20090508
  Receipt Date: 20090428
  Transmission Date: 20091009
  Serious: Yes (Other)
  Sender: FDA-Public Use
  Company Number: US-PFIZER INC-2008153117

PATIENT
  Age: 60 Year
  Sex: Female
  Weight: 89.342 kg

DRUGS (1)
  1. CHANTIX [Suspect]
     Indication: SMOKING CESSATION THERAPY
     Dosage: UNK
     Dates: start: 20081127, end: 20081201

REACTIONS (5)
  - APPARENT DEATH [None]
  - LIP SWELLING [None]
  - LOCAL SWELLING [None]
  - OEDEMA MOUTH [None]
  - URTICARIA [None]
